FAERS Safety Report 5645628-6 (Version None)
Quarter: 2008Q1

REPORT INFORMATION
  Report Type: 
  Country: None (occurrence: None)
  Receive Date: 20080229
  Receipt Date: 20080219
  Transmission Date: 20080703
  Serious: Yes (Other)
  Sender: FDA-Public Use
  Company Number: CA-PFIZER INC-2008008065

PATIENT
  Sex: Female
  Weight: 80.7 kg

DRUGS (7)
  1. LYRICA [Suspect]
     Indication: PAIN
     Route: 048
     Dates: start: 20071101, end: 20080128
  2. LYRICA [Suspect]
     Indication: FIBROMYALGIA
  3. ATIVAN [Concomitant]
     Route: 048
  4. MARVELON [Concomitant]
     Route: 048
  5. SINGULAIR [Concomitant]
     Route: 048
  6. IBUPROFEN [Concomitant]
     Route: 048
  7. TYLENOL EXTRA-STRENGTH [Concomitant]
     Route: 048

REACTIONS (8)
  - ACTIVITIES OF DAILY LIVING IMPAIRED [None]
  - COORDINATION ABNORMAL [None]
  - DISTURBANCE IN ATTENTION [None]
  - DIZZINESS [None]
  - INCREASED APPETITE [None]
  - NIGHT SWEATS [None]
  - SOMNOLENCE [None]
  - WEIGHT INCREASED [None]
